FAERS Safety Report 6211659-0 (Version None)
Quarter: 2009Q2

REPORT INFORMATION
  Report Type: 
  Country: None (occurrence: None)
  Receive Date: 20090602
  Receipt Date: 20090526
  Transmission Date: 20091009
  Serious: Yes (Hospitalization, Other)
  Sender: FDA-Public Use
  Company Number: A0787745A

PATIENT
  Sex: Male
  Weight: 62 kg

DRUGS (2)
  1. SERETIDE [Suspect]
     Indication: ASTHMA
     Route: 055
     Dates: start: 20081125
  2. BEROTEC [Concomitant]
     Dates: start: 19970101

REACTIONS (3)
  - ASTHMA [None]
  - PNEUMONIA [None]
  - RESPIRATORY FAILURE [None]
